FAERS Safety Report 6134811-1 (Version None)
Quarter: 2009Q1

REPORT INFORMATION
  Report Type: 
  Country: None (occurrence: None)
  Receive Date: 20090327
  Receipt Date: 20090319
  Transmission Date: 20090719
  Serious: Yes (Other)
  Sender: FDA-Public Use
  Company Number: PHHY2009JP05722

PATIENT
  Sex: Female

DRUGS (7)
  1. NEORAL [Suspect]
     Indication: DERMATITIS ATOPIC
     Dosage: 200 MG/DAY
     Route: 048
     Dates: start: 20090130, end: 20090213
  2. NEORAL [Interacting]
     Dosage: 200 MG/DAY
     Route: 048
     Dates: start: 20090222
  3. ALCOHOL [Interacting]
     Dosage: UNK
     Dates: start: 20090213, end: 20090213
  4. DIFLAL [Concomitant]
     Indication: DERMATITIS ATOPIC
     Dosage: 2 G
     Dates: start: 20080906
  5. ANTEBATE [Concomitant]
     Indication: DERMATITIS ATOPIC
     Dosage: 6 G
     Dates: start: 20080906
  6. PROPADERM [Concomitant]
     Indication: DERMATITIS ATOPIC
     Dosage: 0.4 G
     Dates: start: 20070630
  7. KINDAVATE [Concomitant]
     Indication: DERMATITIS ATOPIC
     Dosage: 0.1 G
     Dates: start: 20080906

REACTIONS (4)
  - ANAPHYLACTIC REACTION [None]
  - DYSPNOEA [None]
  - ERYTHEMA [None]
  - URTICARIA [None]
